FAERS Safety Report 18353260 (Version 1)
Quarter: 2020Q4

REPORT INFORMATION
  Report Type: Spontaneous
  Country: CN (occurrence: CN)
  Receive Date: 20201007
  Receipt Date: 20201007
  Transmission Date: 20210114
  Serious: Yes (Disabling, Other)
  Sender: FDA-Public Use
  Company Number: CN-ASTRAZENECA-2020SF27712

PATIENT
  Age: 16937 Day
  Sex: Male
  Weight: 60 kg

DRUGS (3)
  1. NEXIUM [Suspect]
     Active Substance: ESOMEPRAZOLE MAGNESIUM
     Indication: CHRONIC GASTRITIS
     Route: 048
     Dates: start: 20200831, end: 20200923
  2. PREDNISONE. [Concomitant]
     Active Substance: PREDNISONE
     Indication: RENAL DISORDER
     Route: 065
  3. AMINO ACIDS [Concomitant]
     Active Substance: AMINO ACIDS, SOURCE UNSPECIFIED

REACTIONS (3)
  - Chronic kidney disease [Not Recovered/Not Resolved]
  - Hypercalcaemia [Unknown]
  - Lung opacity [Unknown]

NARRATIVE: CASE EVENT DATE: 20200922
